FAERS Safety Report 9579439 (Version 1)
Quarter: 2013Q4

REPORT INFORMATION
  Report Type: Spontaneous
  Country: US (occurrence: US)
  Receive Date: 20131001
  Receipt Date: 20131001
  Transmission Date: 20140711
  Serious: No
  Sender: FDA-Public Use
  Company Number: US-AMGEN-USASP2013019382

PATIENT
  Age: 76 Year
  Sex: Male

DRUGS (2)
  1. PROCRIT [Suspect]
     Indication: APLASTIC ANAEMIA
     Dosage: 1 ML, 1 IN 1 WK  QWK
     Dates: start: 20130125
  2. REVLIMID [Suspect]
     Indication: PLASMA CELL MYELOMA
     Dosage: 25 MG, AT BEDTIME QD
     Route: 048
     Dates: start: 20130207

REACTIONS (2)
  - Abdominal discomfort [Recovered/Resolved]
  - Malaise [Unknown]
